FAERS Safety Report 14357322 (Version 3)
Quarter: 2018Q2

REPORT INFORMATION
  Report Type: Report from Study
  Country: US (occurrence: US)
  Receive Date: 20180105
  Receipt Date: 20180423
  Transmission Date: 20180711
  Serious: Yes (Other)
  Sender: FDA-Public Use
  Company Number: US-AMGEN-USASL2017184904

PATIENT
  Age: 55 Year
  Sex: Male
  Weight: 137.41 kg

DRUGS (1)
  1. REPATHA [Suspect]
     Active Substance: EVOLOCUMAB
     Indication: BLOOD PRESSURE INCREASED
     Dosage: 140 MG, Q2WK
     Route: 058
     Dates: start: 20160701

REACTIONS (3)
  - Facial pain [Unknown]
  - Blood pressure increased [Recovered/Resolved]
  - Eye pain [Unknown]

NARRATIVE: CASE EVENT DATE: 2017
